FAERS Safety Report 7322776-6 (Version None)
Quarter: 2011Q1

REPORT INFORMATION
  Report Type: 
  Country: None (occurrence: None)
  Receive Date: 20110216
  Receipt Date: 20110204
  Transmission Date: 20110831
  Serious: Yes (Death)
  Sender: FDA-Public Use
  Company Number: 026999

PATIENT
  Age: 29 Year
  Sex: Male

DRUGS (8)
  1. DIAZEPAM [Concomitant]
  2. RIVOTRIL [Concomitant]
  3. HYDANTOL [Concomitant]
  4. TEGRETOL [Concomitant]
  5. PRIMIDONE [Concomitant]
  6. KEPPRA [Suspect]
     Indication: EPILEPSY
     Dosage: (1000 MG QD ORAL), (2000MG ORAL), (3000 MG ORAL)
     Route: 048
     Dates: start: 20101008, end: 20101118
  7. KEPPRA [Suspect]
     Indication: EPILEPSY
     Dosage: (1000 MG QD ORAL), (2000MG ORAL), (3000 MG ORAL)
     Route: 048
     Dates: start: 20101215, end: 20110119
  8. KEPPRA [Suspect]
     Indication: EPILEPSY
     Dosage: (1000 MG QD ORAL), (2000MG ORAL), (3000 MG ORAL)
     Route: 048
     Dates: start: 20101119, end: 20101214

REACTIONS (4)
  - HEADACHE [None]
  - CORONARY ARTERY DISEASE [None]
  - NAUSEA [None]
  - ARTERIAL INJURY [None]
